FAERS Safety Report 5836903-0 (Version None)
Quarter: 2008Q3

REPORT INFORMATION
  Report Type: 
  Country: None (occurrence: None)
  Receive Date: 20080805
  Receipt Date: 20080729
  Transmission Date: 20090109
  Serious: Yes (Death, Hospitalization)
  Sender: FDA-Public Use
  Company Number: CTI_00986_2008

PATIENT
  Age: 60 Year
  Sex: Female

DRUGS (5)
  1. ZYFLO CR [Suspect]
     Indication: DRUG USE FOR UNKNOWN INDICATION
     Dosage: DF
     Dates: start: 20080626
  2. THEOPHYLLINE [Concomitant]
  3. ADVAIR DISKUS 100/50 [Concomitant]
  4. PREDNISONE TAB [Concomitant]
  5. ALBUTEROL [Concomitant]

REACTIONS (1)
  - ASTHMA [None]
